FAERS Safety Report 19625511 (Version 1)
Quarter: 2021Q3

REPORT INFORMATION
  Report Type: Spontaneous
  Country: US (occurrence: US)
  Receive Date: 20210728
  Receipt Date: 20210728
  Transmission Date: 20211014
  Serious: No
  Sender: FDA-Public Use
  Company Number: None

PATIENT

DRUGS (2)
  1. BETASERON [Suspect]
     Active Substance: INTERFERON BETA-1B
  2. BETASERON [Concomitant]
     Active Substance: INTERFERON BETA-1B

REACTIONS (4)
  - Necrotising fasciitis [None]
  - Pain [None]
  - Skin laceration [None]
  - Skin weeping [None]
